FAERS Safety Report 23543289 (Version 1)
Quarter: 2024Q1

REPORT INFORMATION
  Report Type: Spontaneous
  Country: GB (occurrence: GB)
  Receive Date: 20240220
  Receipt Date: 20240220
  Transmission Date: 20240409
  Serious: Yes (Other)
  Sender: FDA-Public Use
  Company Number: GB-Accord-407147

PATIENT
  Age: 55 Year
  Sex: Male

DRUGS (8)
  1. CLOZAPINE [Suspect]
     Active Substance: CLOZAPINE
     Indication: Schizophrenia
     Dosage: REDUCED TO 275 MG
     Dates: start: 202012
  2. LORAZEPAM [Concomitant]
     Active Substance: LORAZEPAM
     Indication: Product used for unknown indication
     Dosage: REDUCE TO 2.5 MG DAILY, 1 MG 4 TIMES A DAY
  3. LURASIDONE [Concomitant]
     Active Substance: LURASIDONE
     Indication: Product used for unknown indication
     Dosage: EVERY NIGHT
  4. LAMOTRIGINE [Concomitant]
     Active Substance: LAMOTRIGINE
     Indication: Product used for unknown indication
     Dosage: EVERY MORNING, DECREASED TO 300 MG, REDUCED TO 50 MG, INCREASED 200 MG DAILY
  5. MIRTAZAPINE [Concomitant]
     Active Substance: MIRTAZAPINE
     Indication: Product used for unknown indication
     Dosage: EVERY NIGHT
  6. SERTRALINE [Concomitant]
     Active Substance: SERTRALINE HYDROCHLORIDE
     Indication: Product used for unknown indication
     Dosage: MG EVERY MORNING
  7. VORTIOXETINE [Concomitant]
     Active Substance: VORTIOXETINE
     Indication: Cognitive disorder
  8. PREGABALIN [Concomitant]
     Active Substance: PREGABALIN
     Indication: Anxiety

REACTIONS (1)
  - Generalised tonic-clonic seizure [Not Recovered/Not Resolved]

NARRATIVE: CASE EVENT DATE: 20210201
